FAERS Safety Report 5727550-X (Version None)
Quarter: 2008Q2

REPORT INFORMATION
  Report Type: 
  Country: None (occurrence: None)
  Receive Date: 20080505
  Receipt Date: 20080430
  Transmission Date: 20081010
  Serious: Yes (Death)
  Sender: FDA-Public Use
  Company Number: GB-GENENTECH-256871

PATIENT
  Sex: Male

DRUGS (1)
  1. RAPTIVA [Suspect]
     Indication: PSORIASIS
     Dosage: 60 MG, 1/WEEK
     Route: 058
     Dates: start: 20061121, end: 20070107

REACTIONS (3)
  - CARDIAC FAILURE [None]
  - ERYTHRODERMIC PSORIASIS [None]
  - LOWER RESPIRATORY TRACT INFECTION [None]
